FAERS Safety Report 7944544-4 (Version None)
Quarter: 2011Q4

REPORT INFORMATION
  Report Type: 
  Country: None (occurrence: None)
  Receive Date: 20111122
  Receipt Date: 20110801
  Transmission Date: 20120403
  Serious: Yes (Other)
  Sender: FDA-Public Use
  Company Number: PHHY2011US69712

PATIENT
  Age: 39 Year
  Sex: Female

DRUGS (5)
  1. GILENYA [Suspect]
     Indication: MULTIPLE SCLEROSIS
     Dosage: 0.5MG, QD, ORAL
     Route: 048
     Dates: start: 20110730
  2. GILENYA [Suspect]
     Indication: MULTIPLE SCLEROSIS
     Dosage: 0.5MG, QD, ORAL
     Route: 048
     Dates: start: 20110622
  3. GABAPENTIN [Concomitant]
  4. WELLBUTRIN [Concomitant]
  5. BACLOFEN [Concomitant]

REACTIONS (4)
  - VISUAL IMPAIRMENT [None]
  - DYSPNOEA [None]
  - PAIN [None]
  - MULTIPLE SCLEROSIS RELAPSE [None]
